FAERS Safety Report 4577467-1 (Version None)
Quarter: 2005Q1

REPORT INFORMATION
  Report Type: 
  Country: None (occurrence: None)
  Receive Date: 20050208
  Receipt Date: 20050126
  Transmission Date: 20050727
  Serious: Yes (Death, Hospitalization, Other)
  Sender: FDA-Public Use
  Company Number: 2005011729

PATIENT
  Age: 62 Year
  Sex: Male

DRUGS (11)
  1. ZYRTEC [Suspect]
     Indication: ILL-DEFINED DISORDER
     Dosage: (1 IN 1 D), ORAL
     Route: 048
     Dates: start: 20041021
  2. ATARAX [Suspect]
     Indication: ILL-DEFINED DISORDER
     Dates: start: 20041021
  3. AMLODIPINE BESYLATE [Suspect]
     Indication: ILL-DEFINED DISORDER
     Dates: start: 20041021
  4. PREDNISONE [Suspect]
     Indication: ILL-DEFINED DISORDER
     Dosage: 5 MG (DAILY),ORAL
     Route: 048
     Dates: start: 20041021
  5. OMEPRAZOLE [Suspect]
     Indication: ILL-DEFINED DISORDER
     Dosage: 40 MG (DAILY), ORAL
     Route: 048
     Dates: start: 20041021
  6. TACROLIMUS (TACROLIMUS) [Suspect]
     Indication: ILL-DEFINED DISORDER
     Dosage: 2 MG (DAILY), ORAL
     Route: 048
     Dates: start: 20041021
  7. TRAMADOL HCL [Concomitant]
  8. ALL OTHER THERAPEUTIC PRODUCTS (ALL OTHER THERAPEUTIC PRODUCTS) [Concomitant]
  9. HEPARIN-FRACTION, SODIUM SALT (HEPARIN-FRACTION, SODIUM SALT) [Concomitant]
  10. METOCLOPRAMIDE [Concomitant]
  11. ACEBUTOLOL HCL [Concomitant]

REACTIONS (20)
  - ABNORMAL SENSATION IN EYE [None]
  - ANGIOPATHY [None]
  - CHOLESTASIS [None]
  - COMA [None]
  - CONFUSIONAL STATE [None]
  - CONVULSION [None]
  - EXTRAPYRAMIDAL DISORDER [None]
  - EYE DISORDER [None]
  - FEELING ABNORMAL [None]
  - FLUID RETENTION [None]
  - GENERAL PHYSICAL HEALTH DETERIORATION [None]
  - HEPATITIS [None]
  - KLEBSIELLA INFECTION [None]
  - METABOLIC ENCEPHALOPATHY [None]
  - NERVOUS SYSTEM DISORDER [None]
  - NOSOCOMIAL INFECTION [None]
  - PHOTOPSIA [None]
  - RENAL FAILURE CHRONIC [None]
  - RETINOPATHY HYPERTENSIVE [None]
  - VITREOUS FLOATERS [None]
